FAERS Safety Report 7452091-1 (Version None)
Quarter: 2011Q2

REPORT INFORMATION
  Report Type: 
  Country: None (occurrence: None)
  Receive Date: 20110502
  Receipt Date: 20100708
  Transmission Date: 20111010
  Serious: Yes (Death, Hospitalization)
  Sender: FDA-Public Use
  Company Number: CI-GILEAD-2010-0030348

PATIENT
  Age: 41 Year
  Sex: Female
  Weight: 88 kg

DRUGS (5)
  1. LOPINAVIR [Concomitant]
     Indication: HIV INFECTION
     Dates: start: 20100609, end: 20100702
  2. AMOXICILLIN [Concomitant]
     Indication: OROPHARYNGEAL PAIN
     Dates: start: 20100609, end: 20100615
  3. DICLOFENAC [Concomitant]
     Indication: PHARYNGITIS
     Dates: start: 20100624, end: 20100702
  4. RITONAVIR [Concomitant]
     Indication: HIV INFECTION
     Dates: start: 20100609, end: 20100702
  5. TRUVADA [Suspect]
     Indication: HIV INFECTION
     Route: 048
     Dates: start: 20100609, end: 20100702

REACTIONS (2)
  - COMA [None]
  - MENINGISM [None]
